FAERS Safety Report 5939547-5 (Version None)
Quarter: 2008Q4

REPORT INFORMATION
  Report Type: 
  Country: None (occurrence: None)
  Receive Date: 20081029
  Receipt Date: 20081014
  Transmission Date: 20090506
  Serious: Yes (Hospitalization)
  Sender: FDA-Public Use
  Company Number: ENTC2008-0333

PATIENT
  Age: 67 Year
  Sex: Female

DRUGS (5)
  1. STALEVO 100 [Suspect]
     Indication: PARKINSON'S DISEASE
     Dosage: 100/25/200MG X 1
     Dates: start: 20071024
  2. EMEND [Suspect]
     Indication: NAUSEA
     Dosage: 125MG AT J1, 80MG AT J2 AND J3 QW
     Dates: end: 20071102
  3. ZOPHREN [Suspect]
     Dosage: 8MG QD FROM J1 TO J3 QW INTRAVENOUS
     Route: 042
     Dates: end: 20071102
  4. DEXAMETHASONE TAB [Suspect]
     Dosage: 20 MG QD FROM J1 TO J3 QW INTRAVENOUS
     Route: 042
     Dates: end: 20071104
  5. TAXOL [Concomitant]

REACTIONS (2)
  - DRUG INEFFECTIVE [None]
  - DRUG INTERACTION [None]
